FAERS Safety Report 4873204-1 (Version None)
Quarter: 2005Q4

REPORT INFORMATION
  Report Type: 
  Country: None (occurrence: None)
  Receive Date: 20051201
  Receipt Date: 20050808
  Transmission Date: 20060501
  Serious: No
  Sender: FDA-Public Use
  Company Number: 2005PV000888

PATIENT
  Age: 67 Year
  Sex: Female
  Weight: 100.6985 kg

DRUGS (12)
  1. BYETTA [Suspect]
     Indication: DIABETES MELLITUS NON-INSULIN-DEPENDENT
     Dosage: 5 MCG, BID, SC
     Route: 058
     Dates: start: 20050711
  2. FOLIC ACID [Concomitant]
  3. GLIPIZIDE [Concomitant]
  4. METFORMIN [Concomitant]
  5. TOPROL-XL [Concomitant]
  6. DIOVAN [Concomitant]
  7. LIPITOR [Concomitant]
  8. HYDROCHLOROTHIAZIDE [Concomitant]
  9. MOBIC [Concomitant]
  10. CENTRUM [Concomitant]
  11. CALCIUM GLUCONATE [Concomitant]
  12. ASPIRIN [Concomitant]

REACTIONS (5)
  - ABDOMINAL PAIN UPPER [None]
  - CONDITION AGGRAVATED [None]
  - COUGH [None]
  - DIARRHOEA [None]
  - INJECTION SITE BRUISING [None]
